FAERS Safety Report 7558038-1 (Version None)
Quarter: 2011Q2

REPORT INFORMATION
  Report Type: 
  Country: None (occurrence: None)
  Receive Date: 20110620
  Receipt Date: 20110606
  Transmission Date: 20111010
  Serious: Yes (Other)
  Sender: FDA-Public Use
  Company Number: DE-UCBSA-035098

PATIENT
  Age: 50 Year
  Sex: Male

DRUGS (9)
  1. CARBAMAZEPINE [Concomitant]
  2. PREGABALIN [Concomitant]
  3. TOPIRAMATE [Concomitant]
  4. VIMPAT [Suspect]
     Indication: EPILEPSY
     Dates: start: 20100501
  5. VIMPAT [Suspect]
  6. LEVETIRACETAM [Suspect]
     Indication: EPILEPSY
  7. OXCARBAZEPINE [Concomitant]
  8. VALPROIC ACID [Concomitant]
  9. LAMOTRIGINE [Concomitant]

REACTIONS (2)
  - MULTIPLE MYELOMA [None]
  - CONVULSION [None]
